FAERS Safety Report 17965274 (Version 1)
Quarter: 2020Q2

REPORT INFORMATION
  Report Type: Spontaneous
  Country: US (occurrence: US)
  Receive Date: 20200630
  Receipt Date: 20200630
  Transmission Date: 20200714
  Serious: No
  Sender: FDA-Public Use
  Company Number: US-PFIZER INC-2020247156

PATIENT
  Age: 56 Year
  Sex: Female
  Weight: 68.04 kg

DRUGS (3)
  1. CHANTIX [Suspect]
     Active Substance: VARENICLINE TARTRATE
     Dosage: 1 MG, 2X/DAY, (TWICE EACH DAY)
     Route: 048
     Dates: start: 20200402, end: 20200621
  2. CHANTIX [Suspect]
     Active Substance: VARENICLINE TARTRATE
     Indication: SMOKING CESSATION THERAPY
     Dosage: UNK (ON 0.5MG FOR A WEEK THEN INCREASED TO 1MG)
     Dates: start: 2019, end: 2019
  3. CHANTIX [Suspect]
     Active Substance: VARENICLINE TARTRATE
     Dosage: 1 MG, 2X/DAY
     Route: 048
     Dates: start: 201910, end: 2020

REACTIONS (6)
  - Anger [Recovering/Resolving]
  - Stress [Not Recovered/Not Resolved]
  - Depression [Recovering/Resolving]
  - Divorced [Recovering/Resolving]
  - Depressed mood [Recovering/Resolving]
  - Aggression [Unknown]

NARRATIVE: CASE EVENT DATE: 202004
